FAERS Safety Report 9096341 (Version 3)
Quarter: 2013Q1

REPORT INFORMATION
  Report Type: Report from Study
  Country: IL (occurrence: IL)
  Receive Date: 20130207
  Receipt Date: 20130312
  Transmission Date: 20140127
  Serious: Yes (Other)
  Sender: FDA-Public Use
  Company Number: IL-ROCHE-1185043

PATIENT
  Age: 13 Year
  Sex: Male
  Weight: 55 kg

DRUGS (4)
  1. RITUXIMAB [Suspect]
     Indication: NEPHROTIC SYNDROME
     Route: 042
     Dates: start: 20121231, end: 20130114
  2. PREDNISONE [Concomitant]
     Indication: NEPHROTIC SYNDROME
     Route: 048
     Dates: start: 20121002
  3. OMEPRADEX [Concomitant]
     Indication: STEROID THERAPY
     Route: 048
     Dates: start: 20121002
  4. PROGRAF [Concomitant]
     Route: 065
     Dates: start: 201008, end: 201212

REACTIONS (5)
  - Hypoalbuminaemia [Not Recovered/Not Resolved]
  - Disease progression [Not Recovered/Not Resolved]
  - Nausea [Recovered/Resolved]
  - Dyspnoea [Recovered/Resolved]
  - Off label use [Unknown]
